FAERS Safety Report 7826265-1 (Version None)
Quarter: 2011Q4

REPORT INFORMATION
  Report Type: 
  Country: None (occurrence: None)
  Receive Date: 20111020
  Receipt Date: 20111012
  Transmission Date: 20120403
  Serious: No
  Sender: FDA-Public Use
  Company Number: US-BIOGENIDEC-2011BI023431

PATIENT
  Sex: Female

DRUGS (1)
  1. TYSABRI [Suspect]
     Indication: MULTIPLE SCLEROSIS
     Route: 042
     Dates: start: 20110131

REACTIONS (7)
  - FATIGUE [None]
  - ARTHRALGIA [None]
  - SINUSITIS [None]
  - RASH [None]
  - PYREXIA [None]
  - ASTHENIA [None]
  - BONE PAIN [None]
